FAERS Safety Report 10197280 (Version 1)
Quarter: 2014Q2

REPORT INFORMATION
  Report Type: Spontaneous
  Country: FR (occurrence: FR)
  Receive Date: 20140527
  Receipt Date: 20140527
  Transmission Date: 20141212
  Serious: Yes (Hospitalization)
  Sender: FDA-Public Use
  Company Number: FR-GLAXOSMITHKLINE-B0996240A

PATIENT
  Age: 71 Year
  Sex: Female

DRUGS (9)
  1. ARIXTRA [Suspect]
     Indication: THROMBOPHLEBITIS
     Dosage: 7.5MG PER DAY
     Route: 058
     Dates: start: 20140414, end: 20140419
  2. NOVATREX [Concomitant]
     Dosage: 4TAB WEEKLY
     Route: 048
  3. DOLIPRANE [Concomitant]
     Dosage: 1G THREE TIMES PER DAY
     Route: 065
  4. FIXICAL VITAMINE D3 [Concomitant]
     Route: 065
  5. SPECIAFOLDINE [Concomitant]
     Route: 065
  6. ESIDREX [Concomitant]
     Route: 065
  7. LEVOTHYROX [Concomitant]
     Route: 065
  8. ESOMEPRAZOLE [Concomitant]
     Route: 065
  9. CRESTOR [Concomitant]
     Route: 065

REACTIONS (4)
  - Pituitary haemorrhage [Not Recovered/Not Resolved]
  - Headache [Unknown]
  - Nausea [Unknown]
  - Vomiting [Unknown]
